FAERS Safety Report 21494741 (Version 6)
Quarter: 2022Q4

REPORT INFORMATION
  Report Type: Spontaneous
  Country: ES (occurrence: ES)
  Receive Date: 20221021
  Receipt Date: 20221115
  Transmission Date: 20230113
  Serious: Yes (Hospitalization, Other)
  Sender: FDA-Public Use
  Company Number: ES-NOVARTISPH-NVSC2022ES235111

PATIENT
  Age: 81 Year
  Sex: Female

DRUGS (15)
  1. ATORVASTATIN [Suspect]
     Active Substance: ATORVASTATIN
     Indication: Dyslipidaemia
     Dosage: 40 MG, QD (0-0-1)
     Route: 065
  2. AMLODIPINE [Suspect]
     Active Substance: AMLODIPINE BESYLATE
     Indication: Hypertension
     Dosage: 5 MG, QD (0-0-1)
     Route: 065
  3. OMEPRAZOLE [Suspect]
     Active Substance: OMEPRAZOLE
     Indication: Product used for unknown indication
     Dosage: UNK, QD (1-0-0)
     Route: 065
  4. ACETAMINOPHEN [Suspect]
     Active Substance: ACETAMINOPHEN
     Indication: Product used for unknown indication
     Dosage: (AS NEEDED), PARACETAMOL ON DEMAND, WITH ACENOCOUMAROL BEING SUSPENDED
     Route: 065
  5. EPLERENONE [Suspect]
     Active Substance: EPLERENONE
     Indication: Product used for unknown indication
     Dosage: 0.5 MG (1/2-0-0)
     Route: 065
     Dates: start: 202201, end: 202204
  6. EPLERENONE [Suspect]
     Active Substance: EPLERENONE
     Dosage: 1 DOSAGE FORM, QD (INCREASED TO 1 TABLET PER DAY)
     Route: 065
  7. BRINZOLAMIDE [Suspect]
     Active Substance: BRINZOLAMIDE
     Indication: Product used for unknown indication
     Dosage: 10 MG COL, BID (1-0-1)
     Route: 065
     Dates: start: 202201, end: 202204
  8. MOMETASONE [Suspect]
     Active Substance: MOMETASONE
     Indication: Product used for unknown indication
     Dosage: 0.1 %
     Route: 065
     Dates: start: 202201, end: 202204
  9. FUROSEMIDE [Suspect]
     Active Substance: FUROSEMIDE
     Indication: Product used for unknown indication
     Dosage: 1-0-1/2
     Route: 065
     Dates: start: 202201, end: 202204
  10. ENALAPRIL [Suspect]
     Active Substance: ENALAPRIL
     Indication: Product used for unknown indication
     Dosage: 1/2-0-1/ 2
     Route: 065
     Dates: start: 202201, end: 202204
  11. IBANDRONIC ACID [Suspect]
     Active Substance: IBANDRONIC ACID
     Indication: Product used for unknown indication
     Dosage: 1-0-0
     Route: 065
     Dates: start: 202201, end: 202204
  12. APIXABAN [Suspect]
     Active Substance: APIXABAN
     Indication: Product used for unknown indication
     Dosage: 5 MG, BID (1-0-1)
     Route: 065
     Dates: start: 202201, end: 202203
  13. METILDIGOXIN [Suspect]
     Active Substance: METILDIGOXIN
     Indication: Product used for unknown indication
     Dosage: 0.1 MG (1-0-0)
     Route: 065
     Dates: start: 202201, end: 202204
  14. BETAMETHASONE DIPROPIONATE\CALCIPOTRIENE HYDRATE [Suspect]
     Active Substance: BETAMETHASONE DIPROPIONATE\CALCIPOTRIENE HYDRATE
     Indication: Product used for unknown indication
     Dosage: 1 DOSAGE FORM (BETAMETHASONE 50 MCG, CALCIPOTRIOL 0.5 MG/G) GEL AND FOAM
     Route: 065
     Dates: start: 202201, end: 202204
  15. CHOLECALCIFEROL [Suspect]
     Active Substance: CHOLECALCIFEROL
     Indication: Product used for unknown indication
     Dosage: 25000 IU, QMO
     Route: 065

REACTIONS (7)
  - Bradycardia [Unknown]
  - Wound haemorrhage [Unknown]
  - Dizziness [Unknown]
  - Dyspnoea [Unknown]
  - Haematoma [Unknown]
  - Medication error [Unknown]
  - Therapeutic product effect decreased [Unknown]

NARRATIVE: CASE EVENT DATE: 20220201
